FAERS Safety Report 9425082 (Version 3)
Quarter: 2014Q1

REPORT INFORMATION
  Report Type: Report from Study
  Country: US (occurrence: US)
  Receive Date: 20130729
  Receipt Date: 20140307
  Transmission Date: 20141002
  Serious: Yes (Hospitalization)
  Sender: FDA-Public Use
  Company Number: US-ACTELION-A-US2013-86113

PATIENT
  Age: 60 Year
  Sex: Female

DRUGS (2)
  1. VELETRI [Suspect]
     Indication: PULMONARY ARTERIAL HYPERTENSION
     Dosage: 8 NG/KG, PER MIN
     Route: 042
     Dates: start: 20130627
  2. TRACLEER [Concomitant]
     Indication: PULMONARY ARTERIAL HYPERTENSION
     Dosage: UNK
     Route: 048

REACTIONS (6)
  - Haemoptysis [Unknown]
  - Dyspnoea [Unknown]
  - Pain in jaw [Unknown]
  - Diarrhoea [Unknown]
  - Headache [Unknown]
  - Lung infection [Unknown]
